FAERS Safety Report 11246351 (Version 1)
Quarter: 2015Q2

REPORT INFORMATION
  Report Type: Spontaneous
  Country: US (occurrence: None)
  Receive Date: 20150616
  Receipt Date: 20150616
  Transmission Date: 20150821
  Serious: Yes (Other)
  Sender: FDA-Public Use
  Company Number: USW201406-000135

PATIENT
  Age: 82 Year
  Sex: Male
  Weight: 68.03 kg

DRUGS (4)
  1. CARBIDOPA/LEVODOPA [Concomitant]
     Active Substance: CARBIDOPA\LEVODOPA
  2. ENTACAPONE. [Concomitant]
     Active Substance: ENTACAPONE
  3. APOKYN [Suspect]
     Active Substance: APOMORPHINE HYDROCHLORIDE
     Indication: PARKINSONISM
     Dosage: 0.2 ML, FIVE TIMES A DAY
     Dates: start: 201401, end: 20140623
  4. AZILECT (RASAGILINE) [Concomitant]

REACTIONS (6)
  - Back pain [None]
  - Tongue dry [None]
  - Depression [None]
  - Dry mouth [None]
  - Decreased appetite [None]
  - Drug ineffective [None]

NARRATIVE: CASE EVENT DATE: 201402
